FAERS Safety Report 11303771 (Version 1)
Quarter: 2015Q3

REPORT INFORMATION
  Report Type: Spontaneous
  Country: GB (occurrence: GB)
  Receive Date: 20150723
  Receipt Date: 20150723
  Transmission Date: 20151125
  Serious: Yes (Other)
  Sender: FDA-Public Use
  Company Number: GB-009507513-1507GBR007013

PATIENT
  Age: 21 Year
  Sex: Male

DRUGS (1)
  1. PROPECIA [Suspect]
     Active Substance: FINASTERIDE
     Indication: ALOPECIA
     Dosage: TOOK PROPECIA FOR 7-13 DAYS BEFORE STOPPING.
     Dates: start: 201409

REACTIONS (7)
  - Depression [Not Recovered/Not Resolved]
  - Ejaculation disorder [Recovered/Resolved]
  - Genital pain [Recovered/Resolved]
  - Semen discolouration [Not Recovered/Not Resolved]
  - Suicidal ideation [Not Recovered/Not Resolved]
  - Semen volume decreased [Recovered/Resolved]
  - Libido decreased [Not Recovered/Not Resolved]

NARRATIVE: CASE EVENT DATE: 201409
